FAERS Safety Report 22065705 (Version 1)
Quarter: 2023Q1

REPORT INFORMATION
  Report Type: Spontaneous
  Country: US (occurrence: None)
  Receive Date: 20230304
  Receipt Date: 20230304
  Transmission Date: 20230417
  Serious: Yes (Hospitalization)
  Sender: FDA-Public Use
  Company Number: None

PATIENT
  Age: 53 Year
  Sex: Male
  Weight: 78.5 kg

DRUGS (1)
  1. BASAGLAR KWIKPEN [Suspect]
     Active Substance: INSULIN GLARGINE
     Indication: Type 2 diabetes mellitus
     Dosage: FREQUENCY : DAILY;?
     Route: 058

REACTIONS (14)
  - Dizziness [None]
  - Suspected product quality issue [None]
  - Loss of consciousness [None]
  - Headache [None]
  - Pain [None]
  - Depression [None]
  - Discoloured vomit [None]
  - Haematemesis [None]
  - Hypoglycaemia [None]
  - Wheezing [None]
  - Pneumonia aspiration [None]
  - Pneumonitis aspiration [None]
  - Manufacturing materials issue [None]
  - Product preparation error [None]

NARRATIVE: CASE EVENT DATE: 20230304
